FAERS Safety Report 8008403-3 (Version None)
Quarter: 2011Q4

REPORT INFORMATION
  Report Type: 
  Country: None (occurrence: None)
  Receive Date: 20111227
  Receipt Date: 20111220
  Transmission Date: 20120403
  Serious: Yes (Hospitalization)
  Sender: FDA-Public Use
  Company Number: SE-ROCHE-1024635

PATIENT

DRUGS (2)
  1. AVASTIN [Suspect]
     Indication: COLORECTAL CANCER METASTATIC
     Dates: start: 20110927, end: 20111219
  2. TARCEVA [Suspect]
     Indication: COLORECTAL CANCER METASTATIC
     Dates: start: 20110927, end: 20111219

REACTIONS (1)
  - HEPATIC FUNCTION ABNORMAL [None]
